FAERS Safety Report 12618455 (Version 1)
Quarter: 2016Q3

REPORT INFORMATION
  Report Type: Spontaneous
  Country: JP (occurrence: JP)
  Receive Date: 20160803
  Receipt Date: 20160803
  Transmission Date: 20161109
  Serious: Yes (Other)
  Sender: FDA-Public Use
  Company Number: JP-GLAXOSMITHKLINE-JP2016GSK109325

PATIENT
  Age: 34 Year
  Sex: Female
  Weight: 33 kg

DRUGS (6)
  1. FENTANYL. [Suspect]
     Active Substance: FENTANYL
     Indication: ABDOMINAL PAIN LOWER
     Dosage: 135 UG/HR
     Route: 042
  2. LIDOCAINE HYDROCHLORIDE. [Concomitant]
     Active Substance: LIDOCAINE HYDROCHLORIDE
     Dosage: 2 %, UNK
     Route: 042
  3. VOLTAREN [Suspect]
     Active Substance: DICLOFENAC SODIUM
     Indication: ABDOMINAL PAIN LOWER
     Dosage: 75 MG, UNK
     Route: 054
  4. VOLTAREN [Suspect]
     Active Substance: DICLOFENAC SODIUM
     Indication: BACK PAIN
  5. FENTANYL. [Suspect]
     Active Substance: FENTANYL
     Dosage: 75 UG/HR, UNK
     Route: 042
  6. FENTANYL. [Suspect]
     Active Substance: FENTANYL
     Indication: BACK PAIN
     Dosage: 135 UG, UNK
     Route: 042

REACTIONS (14)
  - Anaemia [Unknown]
  - Faeces discoloured [Unknown]
  - Therapeutic response decreased [Unknown]
  - Duodenal ulcer [Unknown]
  - Duodenal vascular ectasia [Unknown]
  - Feeling drunk [Unknown]
  - Diarrhoea [Unknown]
  - Shock [Unknown]
  - Depressed level of consciousness [Unknown]
  - Blood pressure decreased [Unknown]
  - Tachycardia [Unknown]
  - Seizure [Unknown]
  - Coma scale abnormal [Unknown]
  - Gastrointestinal haemorrhage [Unknown]
